FAERS Safety Report 6314551-6 (Version None)
Quarter: 2009Q3

REPORT INFORMATION
  Report Type: 
  Country: None (occurrence: None)
  Receive Date: 20090819
  Receipt Date: 20090811
  Transmission Date: 20100115
  Serious: No
  Sender: FDA-Public Use
  Company Number: PHHY2009JP22478

PATIENT
  Sex: Male

DRUGS (6)
  1. AMN107 AMN+CAP [Suspect]
     Indication: CHRONIC MYELOID LEUKAEMIA
     Dosage: 800 MG PER DAY
     Route: 048
     Dates: start: 20090511, end: 20090615
  2. AMN107 AMN+CAP [Suspect]
     Dosage: 400 MG PER DAY
     Route: 048
     Dates: start: 20090713
  3. TENORMIN [Concomitant]
     Indication: HYPERTENSION
     Dosage: 1000 MG, UNK
     Route: 048
     Dates: start: 19990510
  4. DASATINIB [Concomitant]
     Dosage: 140 MG, UNK
     Route: 048
     Dates: start: 20060413, end: 20090330
  5. SUMIFERON [Concomitant]
     Dosage: 600 MIU, UNK
     Route: 058
     Dates: start: 19980304, end: 19980608
  6. HYDREA [Concomitant]
     Dosage: 200 MG, UNK
     Route: 048
     Dates: start: 19980609, end: 20010110

REACTIONS (3)
  - ABDOMINAL PAIN [None]
  - HEPATIC FUNCTION ABNORMAL [None]
  - PLATELET COUNT DECREASED [None]
